FAERS Safety Report 14694532 (Version 1)
Quarter: 2018Q1

REPORT INFORMATION
  Report Type: Spontaneous
  Country: US (occurrence: US)
  Receive Date: 20180329
  Receipt Date: 20180329
  Transmission Date: 20180509
  Serious: Yes (Other)
  Sender: FDA-Public Use
  Company Number: US-TEIKOKU PHARMA USA-TPU2018-00184

PATIENT
  Sex: Female
  Weight: 77.18 kg

DRUGS (3)
  1. ANTIBIOTICS [Suspect]
     Active Substance: UNSPECIFIED INGREDIENT
  2. LIDOCAINE PATCH [Suspect]
     Active Substance: LIDOCAINE
     Indication: ARTHRALGIA
     Dosage: PRESCRIBED: 3 PATCHES A DAY BUT PATIENT USUALLY USES LESS THAN 3 PATCHES A DAY
     Route: 061
     Dates: start: 2006
  3. OXYCODONE AND ACETAMINOPHEN [Concomitant]
     Active Substance: ACETAMINOPHEN\OXYCODONE HYDROCHLORIDE
     Indication: ARTHRALGIA
     Dosage: PRESCRIBED:15MG A DAY BUT ONLY TAKES HALF OF ONE PILL
     Dates: start: 2008

REACTIONS (10)
  - Toxicity to various agents [Recovered/Resolved]
  - Therapeutic response unexpected [Unknown]
  - Joint dislocation [Unknown]
  - Prescription drug used without a prescription [Unknown]
  - Fall [Unknown]
  - Upper limb fracture [Unknown]
  - Wrist fracture [Unknown]
  - Rib fracture [Unknown]
  - Concussion [Unknown]
  - Rotator cuff syndrome [Unknown]

NARRATIVE: CASE EVENT DATE: 2012
